FAERS Safety Report 22958157 (Version 2)
Quarter: 2023Q4

REPORT INFORMATION
  Report Type: Spontaneous
  Country: US (occurrence: US)
  Receive Date: 20230919
  Receipt Date: 20231025
  Transmission Date: 20240110
  Serious: No
  Sender: FDA-Public Use
  Company Number: US-SA-SAC20230912000245

PATIENT
  Age: 55 Year
  Sex: Female
  Weight: 102.05 kg

DRUGS (1)
  1. DUPIXENT [Suspect]
     Active Substance: DUPILUMAB
     Indication: Dermatitis atopic
     Dosage: 600 MG, 1X
     Route: 058
     Dates: start: 202308, end: 202308

REACTIONS (6)
  - Drug hypersensitivity [Recovered/Resolved]
  - Feeling hot [Unknown]
  - Rash macular [Recovered/Resolved]
  - Erythema [Unknown]
  - Eczema [Unknown]
  - Rash [Recovered/Resolved]

NARRATIVE: CASE EVENT DATE: 20230101
